FAERS Safety Report 5167908-3 (Version None)
Quarter: 2006Q4

REPORT INFORMATION
  Report Type: 
  Country: None (occurrence: None)
  Receive Date: 20061208
  Receipt Date: 20051109
  Transmission Date: 20070319
  Serious: Yes (Other)
  Sender: FDA-Public Use
  Company Number: PHBS2005JP16429

PATIENT
  Age: 63 Year
  Sex: Female

DRUGS (5)
  1. NEORAL [Suspect]
     Indication: INTERSTITIAL LUNG DISEASE
     Dosage: 200 MG/D
     Route: 048
     Dates: start: 20050210, end: 20050831
  2. NEORAL [Suspect]
     Dosage: 150 MG/D
     Route: 048
     Dates: start: 20050831
  3. NEORAL [Suspect]
     Dosage: 150 MG/D
     Route: 048
     Dates: start: 20040101, end: 20050210
  4. LIMAS [Suspect]
     Indication: BIPOLAR DISORDER
     Dosage: UNK, UNK
     Route: 048
     Dates: end: 20050312
  5. PREDONINE [Concomitant]
     Indication: INTERSTITIAL LUNG DISEASE
     Dosage: 40 MG/D
     Route: 048
     Dates: start: 20041101

REACTIONS (12)
  - ANTIPSYCHOTIC DRUG LEVEL INCREASED [None]
  - BETA 2 MICROGLOBULIN INCREASED [None]
  - BLOOD CREATININE INCREASED [None]
  - BLOOD UREA INCREASED [None]
  - DISEASE PROGRESSION [None]
  - DRUG INTERACTION [None]
  - HERPES ZOSTER [None]
  - MUSCULAR WEAKNESS [None]
  - PNEUMONIA BACTERIAL [None]
  - PSYCHIATRIC SYMPTOM [None]
  - RENAL DISORDER [None]
  - TREMOR [None]
